FAERS Safety Report 6682269-6 (Version None)
Quarter: 2010Q2

REPORT INFORMATION
  Report Type: 
  Country: None (occurrence: None)
  Receive Date: 20100415
  Receipt Date: 20100412
  Transmission Date: 20101027
  Serious: Yes (Death)
  Sender: FDA-Public Use
  Company Number: US-ASTRAZENECA-2009SE14958

PATIENT
  Age: 27389 Day
  Sex: Female

DRUGS (6)
  1. SEROQUEL [Suspect]
     Dosage: 50 MG TO 100 MG
     Route: 048
     Dates: start: 20070208
  2. ARICEPT [Concomitant]
     Dates: start: 20070726
  3. ATENOLOL [Concomitant]
     Dates: start: 20070726
  4. CITALOPRAM HYDROBROMIDE [Concomitant]
     Dates: start: 20070830
  5. LORAZEPAM [Concomitant]
     Dates: start: 20070921
  6. HALOPERIDOL [Concomitant]
     Dates: start: 20080630

REACTIONS (2)
  - DIABETES MELLITUS [None]
  - PNEUMONIA ASPIRATION [None]
